FAERS Safety Report 8829935 (Version 2)
Quarter: 2013Q2

REPORT INFORMATION
  Report Type: Report from Study
  Country: DE (occurrence: DE)
  Receive Date: 20121008
  Receipt Date: 20130517
  Transmission Date: 20140414
  Serious: Yes (Hospitalization)
  Sender: FDA-Public Use
  Company Number: PHHY2012DE087263

PATIENT
  Sex: Male

DRUGS (1)
  1. FTY 720 [Suspect]
     Indication: MULTIPLE SCLEROSIS
     Dosage: 0.5 MG/D
     Route: 048
     Dates: start: 20110705

REACTIONS (1)
  - Hypoglycaemia [Recovered/Resolved]
